FAERS Safety Report 9522307 (Version 1)
Quarter: 2013Q3

REPORT INFORMATION
  Report Type: Spontaneous
  Country: US (occurrence: US)
  Receive Date: 20130913
  Receipt Date: 20130913
  Transmission Date: 20140515
  Serious: Yes (Other)
  Sender: FDA-Public Use
  Company Number: US-UCBSA-097161

PATIENT
  Age: 66 Year
  Sex: 0

DRUGS (6)
  1. NEUPRO [Suspect]
     Dosage: PATCH
  2. NEUPRO [Suspect]
     Dosage: PATCH
  3. METHADONE [Concomitant]
  4. METHADONE [Concomitant]
  5. VALIUM [Concomitant]
  6. REQUIP [Concomitant]

REACTIONS (6)
  - Movement disorder [Unknown]
  - Thoracic outlet syndrome [Unknown]
  - Hypoaesthesia [Unknown]
  - Pain in extremity [Unknown]
  - Middle insomnia [Unknown]
  - Drug ineffective [Unknown]
